FAERS Safety Report 6128837-1 (Version None)
Quarter: 2009Q1

REPORT INFORMATION
  Report Type: 
  Country: None (occurrence: None)
  Receive Date: 20090320
  Receipt Date: 20090309
  Transmission Date: 20090719
  Serious: Yes (Hospitalization, Other)
  Sender: FDA-Public Use
  Company Number: 2009-192893-NL

PATIENT
  Age: 22 Year
  Sex: Female

DRUGS (1)
  1. NUVARING [Suspect]
     Indication: CONTRACEPTION
     Dates: start: 20080201

REACTIONS (3)
  - CERVIX CANCER METASTATIC [None]
  - CERVIX ENLARGEMENT [None]
  - COMPLICATION OF DEVICE REMOVAL [None]
